FAERS Safety Report 14345241 (Version 1)
Quarter: 2018Q1

REPORT INFORMATION
  Report Type: Spontaneous
  Country: PE (occurrence: PE)
  Receive Date: 20180103
  Receipt Date: 20180103
  Transmission Date: 20180509
  Serious: Yes (Other)
  Sender: FDA-Public Use
  Company Number: PE-ROCHE-2045743

PATIENT
  Age: 82 Year
  Sex: Male

DRUGS (1)
  1. AVASTIN [Suspect]
     Active Substance: BEVACIZUMAB
     Indication: MACULAR DEGENERATION
     Route: 050

REACTIONS (7)
  - Pain [Unknown]
  - Ocular hyperaemia [Unknown]
  - Intentional product use issue [Unknown]
  - Blindness unilateral [Unknown]
  - Pyrexia [Unknown]
  - Off label use [Unknown]
  - Eye infection [Unknown]
